FAERS Safety Report 12703047 (Version 2)
Quarter: 2016Q4

REPORT INFORMATION
  Report Type: Spontaneous
  Country: US (occurrence: US)
  Receive Date: 20160831
  Receipt Date: 20161003
  Transmission Date: 20170207
  Serious: Yes (Hospitalization, Other)
  Sender: FDA-Public Use
  Company Number: US-GLAXOSMITHKLINE-US2016GSK125459

PATIENT
  Age: 32 Year
  Sex: Female

DRUGS (2)
  1. TANZEUM [Suspect]
     Active Substance: ALBIGLUTIDE
     Indication: WEIGHT DECREASED
     Dosage: 30 MG, UNK
     Route: 042
     Dates: start: 20160826
  2. TANZEUM [Suspect]
     Active Substance: ALBIGLUTIDE
     Indication: TYPE 2 DIABETES MELLITUS
     Dosage: UNK, WE
     Route: 042
     Dates: start: 20160819

REACTIONS (15)
  - Feeling abnormal [Not Recovered/Not Resolved]
  - Drug screen false positive [Unknown]
  - Drug dose omission [Not Recovered/Not Resolved]
  - Heart rate increased [Not Recovered/Not Resolved]
  - Nervousness [Not Recovered/Not Resolved]
  - Anxiety [Not Recovered/Not Resolved]
  - Continuous positive airway pressure [Not Recovered/Not Resolved]
  - Condition aggravated [Not Recovered/Not Resolved]
  - Product use issue [Unknown]
  - Chest pain [Not Recovered/Not Resolved]
  - Dyspnoea [Not Recovered/Not Resolved]
  - Off label use [Unknown]
  - Heart rate irregular [Not Recovered/Not Resolved]
  - Palpitations [Not Recovered/Not Resolved]
  - Blood glucose decreased [Unknown]

NARRATIVE: CASE EVENT DATE: 201608
